FAERS Safety Report 5084503-5 (Version None)
Quarter: 2006Q3

REPORT INFORMATION
  Report Type: 
  Country: None (occurrence: None)
  Receive Date: 20060821
  Receipt Date: 20051206
  Transmission Date: 20061208
  Serious: Yes (Death, Hospitalization)
  Sender: FDA-Public Use
  Company Number: 2005AP06301

PATIENT
  Age: 17915 Day
  Sex: Male

DRUGS (36)
  1. IRESSA [Suspect]
     Indication: OROPHARYNGEAL CANCER STAGE UNSPECIFIED
     Dosage: CONCOMITANT THERAPY PHASE
     Route: 048
     Dates: start: 20050923, end: 20051119
  2. IRESSA [Suspect]
     Dosage: MAINTENANCE THERAPY PHASE
     Route: 048
     Dates: start: 20051120, end: 20051203
  3. CISPLATIN [Suspect]
     Indication: OROPHARYNGEAL CANCER STAGE UNSPECIFIED
     Route: 042
     Dates: start: 20051003
  4. CISPLATIN [Suspect]
     Route: 042
     Dates: start: 20051024
  5. CISPLATIN [Suspect]
     Route: 042
     Dates: start: 20051114
  6. RADIOTHERAPY [Suspect]
     Indication: OROPHARYNGEAL CANCER STAGE UNSPECIFIED
     Dosage: 2 GY. NOT GIVEN 9 OCT 2005 (SUNDAY)
     Dates: start: 20051003, end: 20051008
  7. RADIOTHERAPY [Suspect]
     Dosage: 2 GY. NOT GIVEN 12 OCT 2005 (HOLIDAY)
     Dates: start: 20051010, end: 20051011
  8. RADIOTHERAPY [Suspect]
     Dosage: 2 GY. NOT GIVEN 16 OCT 2005 (SUNDAY)
     Dates: start: 20051013, end: 20051015
  9. RADIOTHERAPY [Suspect]
     Dosage: 2 GY. NOT GIVEN 22+23 OCT 2005 (WEEKEND)
     Dates: start: 20051017, end: 20051021
  10. RADIOTHERAPY [Suspect]
     Dosage: 2 GY. NOT GIVEN 29 +30 OCT 2005 (WEEKEND)
     Dates: start: 20051024, end: 20051028
  11. RADIOTHERAPY [Suspect]
     Dosage: 2 GY. NOT GIVEN 1 NOV 2005 (HOLIDAY)
     Dates: start: 20051031, end: 20051031
  12. RADIOTHERAPY [Suspect]
     Dosage: 2 GY. NOT GIVEN 6 NOV 2005 (SUNDAY)
     Dates: start: 20051102, end: 20051105
  13. RADIOTHERAPY [Suspect]
     Dosage: 2 GY. NOT GIVEN 8 NOV 2005 (HOLIDAY)
     Dates: start: 20051107, end: 20051107
  14. RADIOTHERAPY [Suspect]
     Dosage: 2 GY. NOT GIVEN 13 NOV 2005 (SUNDAY)
     Dates: start: 20051109, end: 20051112
  15. RADIOTHERAPY [Suspect]
     Dosage: 2 GY. NOT GIVEN 15 NOV 2005 (HOLIDAY)
     Dates: start: 20051114, end: 20051114
  16. RADIOTHERAPY [Suspect]
     Dosage: 2 GY. NOT GIVEN 20 NOV 2005 (COURSE COMPLETED)
     Dates: start: 20051116, end: 20051119
  17. DEXONA [Concomitant]
     Indication: PREMEDICATION
     Route: 042
     Dates: start: 20051003, end: 20051003
  18. DEXONA [Concomitant]
     Route: 042
     Dates: start: 20051114, end: 20051114
  19. RANTAC [Concomitant]
     Indication: PREMEDICATION
     Route: 042
     Dates: start: 20051003, end: 20051003
  20. RANTAC [Concomitant]
     Route: 042
     Dates: start: 20051024, end: 20051024
  21. RANTAC [Concomitant]
     Route: 042
     Dates: start: 20051114, end: 20051114
  22. EMESET [Concomitant]
     Indication: PREMEDICATION
     Route: 042
     Dates: start: 20051003, end: 20051003
  23. EMESET [Concomitant]
     Route: 042
     Dates: start: 20051024, end: 20051024
  24. EMESET [Concomitant]
     Route: 042
     Dates: start: 20051114, end: 20051114
  25. MANNITOL [Concomitant]
     Indication: PREMEDICATION
     Route: 042
     Dates: start: 20051003, end: 20051003
  26. MANNITOL [Concomitant]
     Route: 042
     Dates: start: 20051024, end: 20051024
  27. MAGNESIUM SULFATE [Concomitant]
     Indication: PREMEDICATION
     Route: 042
     Dates: start: 20051003, end: 20051003
  28. MAGNESIUM SULFATE [Concomitant]
     Route: 042
     Dates: start: 20051024, end: 20051024
  29. EVICT [Concomitant]
     Indication: CONSTIPATION
     Route: 048
     Dates: start: 20051019, end: 20051019
  30. MULTI-VITAMIN [Concomitant]
     Indication: PROPHYLAXIS
     Route: 042
     Dates: start: 20051020, end: 20051020
  31. MAGNEX [Concomitant]
     Indication: PYREXIA
     Route: 042
     Dates: start: 20051020, end: 20051026
  32. MAGNEX [Concomitant]
     Route: 042
     Dates: start: 20051105, end: 20051116
  33. AMIKACIN [Concomitant]
     Indication: PYREXIA
     Route: 042
     Dates: start: 20051020, end: 20051026
  34. AMIKACIN [Concomitant]
     Route: 042
     Dates: start: 20051105, end: 20051116
  35. ACETAMINOPHEN [Concomitant]
     Indication: PYREXIA
     Route: 048
     Dates: start: 20051105, end: 20051107
  36. POTASSIUM CHLORIDE [Concomitant]
     Indication: PROPHYLAXIS
     Route: 042
     Dates: start: 20051107, end: 20051107

REACTIONS (15)
  - ABDOMINAL PAIN UPPER [None]
  - ALOPECIA [None]
  - CANCER PAIN [None]
  - CARDIOPULMONARY FAILURE [None]
  - CONSTIPATION [None]
  - DEHYDRATION [None]
  - DIARRHOEA [None]
  - DYSPHAGIA [None]
  - DYSPNOEA [None]
  - ELECTROLYTE IMBALANCE [None]
  - HAEMATEMESIS [None]
  - MUCOSAL INFLAMMATION [None]
  - ORAL INTAKE REDUCED [None]
  - SKIN REACTION [None]
  - VOMITING [None]
